FAERS Safety Report 26095806 (Version 1)
Quarter: 2025Q4

REPORT INFORMATION
  Report Type: Spontaneous
  Country: CN (occurrence: CN)
  Receive Date: 20251127
  Receipt Date: 20251127
  Transmission Date: 20260119
  Serious: Yes (Hospitalization, Other)
  Sender: AMNEAL
  Company Number: CN-AMNEAL PHARMACEUTICALS-2025-AMRX-04551

PATIENT
  Age: 54 Year
  Sex: Male

DRUGS (6)
  1. ALYMSYS [Suspect]
     Active Substance: BEVACIZUMAB-MALY
     Indication: Hepatic cancer
     Dosage: 400 MILLIGRAM, EVERY 3 WEEKS FOR 11 CYCLES
     Route: 065
     Dates: start: 20221107, end: 20230829
  2. ALYMSYS [Suspect]
     Active Substance: BEVACIZUMAB-MALY
     Dosage: UNK, 2 CYCLES
     Route: 065
     Dates: start: 202403, end: 202407
  3. ATEZOLIZUMAB [Suspect]
     Active Substance: ATEZOLIZUMAB
     Indication: Hepatic cancer
     Dosage: 1200 MILLIGRAM, EVERY 3 WEEKS FOR 11 CYCLES
     Route: 065
     Dates: start: 20221107, end: 20230829
  4. ATEZOLIZUMAB [Suspect]
     Active Substance: ATEZOLIZUMAB
     Dosage: UNK, 2 CYCLES
     Route: 065
     Dates: start: 202403, end: 202407
  5. OXALIPLATIN [Concomitant]
     Active Substance: OXALIPLATIN
     Indication: Hepatic cancer
     Dosage: 100 MILLIGRAM
     Route: 065
     Dates: start: 20221027, end: 20221027
  6. RALTITREXED [Concomitant]
     Active Substance: RALTITREXED
     Indication: Hepatic cancer
     Dosage: 4 MILLIGRAM, BID
     Route: 065
     Dates: start: 20221202, end: 20221202

REACTIONS (5)
  - Liver abscess [Recovered/Resolved]
  - Septic shock [Recovered/Resolved]
  - Escherichia bacteraemia [Recovered/Resolved]
  - Klebsiella infection [Recovered/Resolved]
  - Moraxella infection [Recovered/Resolved]

NARRATIVE: CASE EVENT DATE: 20230801
